FAERS Safety Report 22251692 (Version 2)
Quarter: 2023Q2

REPORT INFORMATION
  Report Type: Report from Study
  Country: CN (occurrence: CN)
  Receive Date: 20230425
  Receipt Date: 20230510
  Transmission Date: 20230721
  Serious: Yes (Hospitalization)
  Sender: FDA-Public Use
  Company Number: CN-OCULAR THERAPEUTIX-2023OCX00017

PATIENT
  Age: 65 Year
  Sex: Male
  Weight: 60 kg

DRUGS (9)
  1. DEXTENZA [Suspect]
     Active Substance: DEXAMETHASONE
     Indication: Eye inflammation
     Dosage: SINGLE, LACRIMAL CANALICULAR INSERTION
     Route: 047
     Dates: start: 20230316, end: 20230316
  2. DEXTENZA [Suspect]
     Active Substance: DEXAMETHASONE
     Indication: Eye pain
  3. DEXTENZA [Suspect]
     Active Substance: DEXAMETHASONE
     Indication: Cataract operation complication
  4. LEVOFLOXACIN [Concomitant]
     Active Substance: LEVOFLOXACIN
     Dosage: 0.02 ML, 1X/HOUR
     Route: 047
     Dates: start: 20230315, end: 20230316
  5. LEVOFLOXACIN [Concomitant]
     Active Substance: LEVOFLOXACIN
     Dosage: 0.02 ML, 4X/DAY
     Route: 047
     Dates: start: 20230316
  6. SODIUM HYALURONATE [Concomitant]
     Active Substance: HYALURONATE SODIUM
     Dosage: 0.02 ML, 4X/DAY
     Route: 047
     Dates: start: 20230315, end: 20230317
  7. SODIUM HYALURONATE [Concomitant]
     Active Substance: HYALURONATE SODIUM
     Dosage: 0.02 ML, 4X/DAY
     Route: 047
     Dates: start: 20230317
  8. MONTMORILLONITE [Concomitant]
     Active Substance: MONTMORILLONITE
     Dosage: POWDER
  9. PROBIOTICS NOS [Concomitant]
     Active Substance: PROBIOTICS NOS

REACTIONS (1)
  - Colon cancer [Not Recovered/Not Resolved]

NARRATIVE: CASE EVENT DATE: 20230410
